FAERS Safety Report 10509575 (Version 1)
Quarter: 2014Q4

REPORT INFORMATION
  Report Type: Report from Study
  Country: US (occurrence: US)
  Receive Date: 20141010
  Receipt Date: 20141010
  Transmission Date: 20150528
  Serious: Yes (Hospitalization)
  Sender: FDA-Public Use
  Company Number: US-AMGEN-USACT2014077675

PATIENT
  Age: 44 Year
  Sex: Male
  Weight: 71.2 kg

DRUGS (1)
  1. ROMIPLOSTIM [Suspect]
     Active Substance: ROMIPLOSTIM
     Indication: COLON CANCER
     Dosage: 250 MUG, UNK
     Route: 058
     Dates: start: 20140806

REACTIONS (3)
  - Diarrhoea [Unknown]
  - Varices oesophageal [Unknown]
  - Melaena [Unknown]

NARRATIVE: CASE EVENT DATE: 20141001
